FAERS Safety Report 24908828 (Version 2)
Quarter: 2025Q1

REPORT INFORMATION
  Report Type: Spontaneous
  Country: ES (occurrence: ES)
  Receive Date: 20250131
  Receipt Date: 20250311
  Transmission Date: 20250409
  Serious: Yes (Other)
  Sender: CELLTRION
  Company Number: ES-CELLTRION INC.-2025ES002788

PATIENT

DRUGS (11)
  1. INFLIXIMAB [Suspect]
     Active Substance: INFLIXIMAB
     Indication: Crohn^s disease
     Dosage: 1 DOSAGE FORM EVERY 2 WEEK (ONE DOSE EVERY TWO WEEKS)
     Route: 058
     Dates: start: 20241108, end: 20250105
  2. INFLIXIMAB [Suspect]
     Active Substance: INFLIXIMAB
     Dosage: 1 DOSAGE FORM EVERY 2 WEEK (ONE DOSE EVERY TWO WEEKS)
     Route: 058
     Dates: start: 20241122
  3. INFLIXIMAB [Suspect]
     Active Substance: INFLIXIMAB
     Dosage: 1 DOSAGE FORM EVERY 2 WEEK (ONE DOSE EVERY TWO WEEKS)
     Route: 058
     Dates: start: 20241206
  4. INFLIXIMAB [Suspect]
     Active Substance: INFLIXIMAB
     Dosage: 1 DOSAGE FORM EVERY 2 WEEK (ONE DOSE EVERY TWO WEEKS)
     Route: 058
     Dates: start: 20241220
  5. INFLIXIMAB [Suspect]
     Active Substance: INFLIXIMAB
     Dosage: 1 DOSAGE FORM EVERY 2 WEEK (ONE DOSE EVERY TWO WEEKS)
     Route: 058
     Dates: end: 20250105
  6. CYANOCOBALAMIN [Concomitant]
     Active Substance: CYANOCOBALAMIN
     Route: 030
  7. OZEMPIC [Concomitant]
     Active Substance: SEMAGLUTIDE
  8. IRON [Concomitant]
     Active Substance: IRON
     Route: 048
  9. LAURIMIC [Concomitant]
  10. FLUOXETINE HYDROCHLORIDE [Concomitant]
     Active Substance: FLUOXETINE HYDROCHLORIDE
  11. MOMETASONE [Concomitant]
     Active Substance: MOMETASONE

REACTIONS (2)
  - Pruritus [Not Recovered/Not Resolved]
  - Skin reaction [Not Recovered/Not Resolved]

NARRATIVE: CASE EVENT DATE: 20250105
